FAERS Safety Report 7888282-5 (Version None)
Quarter: 2011Q4

REPORT INFORMATION
  Report Type: 
  Country: None (occurrence: None)
  Receive Date: 20111103
  Receipt Date: 20111027
  Transmission Date: 20120403
  Serious: Yes (Hospitalization)
  Sender: FDA-Public Use
  Company Number: AU-B.I. PHARMACEUTICALS,INC./RIDGEFIELD-2011-AU-01870AU

PATIENT
  Sex: Male

DRUGS (29)
  1. CHOLECALCIFEROL [Concomitant]
     Dosage: 3000 U
  2. FINASTA [Concomitant]
     Dosage: 5 MG
  3. PRILOSEC [Concomitant]
     Dosage: 40 MG
  4. MOVIPREP [Concomitant]
     Dosage: 13.125G/350.7MG/46.6MG/178.5MG
  5. PREDNEFRIN FORTE [Concomitant]
     Dosage: 1%/0.12%
  6. ACCUPRIL [Concomitant]
     Dosage: 10 MG
  7. ALLEVYN THIN [Concomitant]
     Dosage: 10CM X 10CM DRESSING
  8. OXYCONTIN [Concomitant]
     Indication: PAIN
     Dosage: 20 MG
  9. PARAFFIN [Concomitant]
  10. NORMACOL PLUS [Concomitant]
     Dosage: GRANULES - 62%/8%/25%
  11. ATROPT [Concomitant]
     Dosage: 1%
  12. CLARATYNE [Concomitant]
     Dosage: 10 MG
  13. NITROLINGUAL PUMPSPRAY [Concomitant]
  14. PANADOL OSTEO [Concomitant]
  15. PERIACTIN [Concomitant]
     Dosage: 4 MG
  16. TRANSDERM-NITRO [Concomitant]
     Dosage: 50 MG
  17. FERRO-F-TAB [Concomitant]
     Dosage: 310MG/350MCG
  18. MAXOLON [Concomitant]
     Indication: NAUSEA
     Dosage: 30 MG
  19. METAMUCIL-2 [Concomitant]
     Dosage: 5.8 G
  20. TAZAC [Concomitant]
     Dosage: 300 MG
  21. LERCANIDIPINE [Concomitant]
     Dosage: 10 MG
  22. PRADAXA [Suspect]
     Indication: ATRIAL FIBRILLATION
     Dosage: 220 MG
     Dates: start: 20110602, end: 20111020
  23. GLYCEROL 2.6% [Concomitant]
  24. IMOVANE [Concomitant]
     Dosage: 7.5 MG
  25. XALATAN [Concomitant]
     Dosage: 50MCG/ML
  26. ARISTOCORT [Concomitant]
     Dosage: 0.02%
  27. LIPEX [Concomitant]
     Dosage: 10 MG
  28. MAGMIN [Concomitant]
     Dosage: 1000 MG
  29. ACETAMINOPHEN W/ CODEINE [Concomitant]
     Dosage: 500MG/30MG

REACTIONS (2)
  - HIP FRACTURE [None]
  - FALL [None]
